FAERS Safety Report 10534105 (Version 6)
Quarter: 2016Q2

REPORT INFORMATION
  Report Type: Spontaneous
  Country: US (occurrence: US)
  Receive Date: 20141022
  Receipt Date: 20160527
  Transmission Date: 20160815
  Serious: Yes (Other)
  Sender: FDA-Public Use
  Company Number: US-PFIZER INC-2014289571

PATIENT
  Age: 79 Year
  Sex: Female
  Weight: 96 kg

DRUGS (4)
  1. LYRICA [Suspect]
     Active Substance: PREGABALIN
     Indication: PAIN IN EXTREMITY
  2. PROTONIX [Suspect]
     Active Substance: PANTOPRAZOLE SODIUM
     Dosage: UNK
  3. LYRICA [Suspect]
     Active Substance: PREGABALIN
     Indication: FIBROMYALGIA
     Dosage: 50 MG, 3X/DAY
     Route: 048
     Dates: start: 20130304
  4. LYRICA [Suspect]
     Active Substance: PREGABALIN
     Indication: PAIN

REACTIONS (11)
  - Abasia [Unknown]
  - Drug withdrawal syndrome [Unknown]
  - Thinking abnormal [Not Recovered/Not Resolved]
  - Insomnia [Recovered/Resolved]
  - Somnolence [Recovered/Resolved]
  - Hiccups [Unknown]
  - Pain [Not Recovered/Not Resolved]
  - Nausea [Unknown]
  - Arthropathy [Unknown]
  - Intentional product misuse [Unknown]
  - Macular degeneration [Unknown]

NARRATIVE: CASE EVENT DATE: 20140917
